FAERS Safety Report 9284500 (Version 2)
Quarter: 2013Q2

REPORT INFORMATION
  Report Type: Spontaneous
  Country: US (occurrence: US)
  Receive Date: 20130510
  Receipt Date: 20130515
  Transmission Date: 20140414
  Serious: Yes (Hospitalization, Other)
  Sender: FDA-Public Use
  Company Number: US-BAXTER-2013BAX016685

PATIENT
  Age: 51 Year
  Sex: Female

DRUGS (2)
  1. DIANEAL LOW CALCIUM [Suspect]
     Indication: PERITONEAL DIALYSIS
     Route: 033
     Dates: start: 20110705
  2. DIANEAL LOW CALCIUM [Suspect]
     Route: 033
     Dates: start: 20110705

REACTIONS (3)
  - Postoperative wound infection [Unknown]
  - Abscess [Unknown]
  - Peritonitis [Recovering/Resolving]
